FAERS Safety Report 8956450 (Version 1)
Quarter: 2012Q4

REPORT INFORMATION
  Report Type: 
  Country: US (occurrence: US)
  Receive Date: 20121210
  Receipt Date: 20121210
  Transmission Date: 20130627
  Serious: No
  Sender: FDA-Public Use
  Company Number: US-PFIZER INC-2012308713

PATIENT
  Sex: Female

DRUGS (3)
  1. LYRICA [Suspect]
     Indication: NEUROPATHIC PAIN
     Dosage: 25 mg, UNK
     Route: 048
  2. LYRICA [Suspect]
     Dosage: 25 mg, 2x/day
     Route: 048
     Dates: start: 201207
  3. HUMALOG [Concomitant]
     Indication: TYPE I DIABETES MELLITUS
     Dosage: UNK

REACTIONS (4)
  - Balance disorder [Unknown]
  - Somnolence [Unknown]
  - Visual impairment [Unknown]
  - Oedema peripheral [Unknown]
